FAERS Safety Report 11832930 (Version 1)
Quarter: 2015Q4

REPORT INFORMATION
  Report Type: Spontaneous
  Country: US (occurrence: US)
  Receive Date: 20151214
  Receipt Date: 20151214
  Transmission Date: 20160305
  Serious: Yes (Other)
  Sender: FDA-Public Use
  Company Number: US-G+W LABORATORIES-1045451

PATIENT
  Sex: Female

DRUGS (2)
  1. CLOBETASOL PROPIONATE. [Suspect]
     Active Substance: CLOBETASOL PROPIONATE
     Route: 061
     Dates: start: 20150520, end: 20150604
  2. TRIAMCINOLONE ACETONIDE. [Suspect]
     Active Substance: TRIAMCINOLONE ACETONIDE
     Indication: CRONOBACTER INFECTION
     Route: 061
     Dates: start: 20150520, end: 20150604

REACTIONS (5)
  - Off label use [Unknown]
  - Precancerous cells present [Unknown]
  - Erythema [Unknown]
  - Hysterectomy [Unknown]
  - Drug ineffective for unapproved indication [Unknown]

NARRATIVE: CASE EVENT DATE: 2015
